FAERS Safety Report 17781917 (Version 3)
Quarter: 2020Q3

REPORT INFORMATION
  Report Type: Report from Study
  Country: US (occurrence: US)
  Receive Date: 20200513
  Receipt Date: 20200717
  Transmission Date: 20201102
  Serious: No
  Sender: FDA-Public Use
  Company Number: US-ACADIA PHARMACEUTICALS INC.-ACA-2019-013929

PATIENT
  Sex: Female

DRUGS (2)
  1. NUPLAZID [Suspect]
     Active Substance: PIMAVANSERIN TARTRATE
     Indication: PARKINSON^S DISEASE
     Dosage: 34 MILLIGRAM, QD
     Route: 048
     Dates: start: 20190715, end: 201907
  2. NUPLAZID [Suspect]
     Active Substance: PIMAVANSERIN TARTRATE
     Dosage: 34 MG, QD
     Route: 048
     Dates: start: 20190726

REACTIONS (15)
  - Anxiety [Unknown]
  - Hallucination [Unknown]
  - Paranoia [Unknown]
  - Incontinence [Unknown]
  - Insomnia [Unknown]
  - Panic attack [Unknown]
  - Fatigue [Not Recovered/Not Resolved]
  - Emotional disorder [Unknown]
  - Confusional state [Unknown]
  - Confusional state [Not Recovered/Not Resolved]
  - Fall [Unknown]
  - Depressed mood [Unknown]
  - Hallucination [Unknown]
  - Fatigue [Unknown]
  - Peripheral swelling [Unknown]

NARRATIVE: CASE EVENT DATE: 2019
